FAERS Safety Report 11877081 (Version 1)
Quarter: 2015Q4

REPORT INFORMATION
  Report Type: Spontaneous
  Country: US (occurrence: US)
  Receive Date: 20151229
  Receipt Date: 20151229
  Transmission Date: 20160305
  Serious: Yes (Other)
  Sender: FDA-Public Use
  Company Number: US-PFIZER INC-2015451027

PATIENT
  Sex: Female
  Weight: 57 kg

DRUGS (20)
  1. ESTRACE [Concomitant]
     Active Substance: ESTRADIOL
     Indication: VULVOVAGINAL DRYNESS
     Dosage: UNK, 2X/WEEK
     Route: 067
  2. ENBREL [Suspect]
     Active Substance: ETANERCEPT
     Indication: RHEUMATOID ARTHRITIS
     Dosage: INJECTION
  3. PREDNISONE. [Suspect]
     Active Substance: PREDNISONE
     Indication: RHEUMATOID ARTHRITIS
     Dosage: 5 MG, 1X/DAY (ONE IN MORNING)
     Dates: start: 199111
  4. MISOPROSTOL. [Concomitant]
     Active Substance: MISOPROSTOL
     Indication: GASTROOESOPHAGEAL REFLUX DISEASE
     Dosage: 200 MG, UNK
  5. OMEPRAZOLE. [Concomitant]
     Active Substance: OMEPRAZOLE
     Indication: GASTROOESOPHAGEAL REFLUX DISEASE
     Dosage: 40 MG, 1X/DAY
  6. CALCIUM CITRATE/MAGNESIUM CITRATE [Concomitant]
     Dosage: UNK, 3X/DAY (1000 MG WHICH INCLUDE MAGNESIUM 400 MG)
  7. MAGNESIUM [Concomitant]
     Active Substance: MAGNESIUM
     Indication: MUSCLE SPASMS
     Dosage: 250 MG, 3X/DAY
  8. FISH OIL [Concomitant]
     Active Substance: FISH OIL
     Dosage: 1200 MG, 1X/DAY
  9. SULINDAC. [Concomitant]
     Active Substance: SULINDAC
     Indication: PAIN
     Dosage: 200 MG, 2X/DAY
  10. BIOTIN [Concomitant]
     Active Substance: BIOTIN
     Indication: HAIR DISORDER
     Dosage: 5000 MG, UNK
  11. XELJANZ [Suspect]
     Active Substance: TOFACITINIB CITRATE
     Indication: RHEUMATOID ARTHRITIS
     Dosage: 5 MG, 2X/DAY (ONE IN MORNING AND ONE AT NIGHT)
     Dates: start: 201401
  12. RANITIDIN [Concomitant]
     Active Substance: RANITIDINE HYDROCHLORIDE
     Indication: GASTROOESOPHAGEAL REFLUX DISEASE
     Dosage: 150 MG, 1X/DAY
  13. REMICADE [Suspect]
     Active Substance: INFLIXIMAB
     Indication: RHEUMATOID ARTHRITIS
     Dosage: UNK
     Route: 042
  14. MULTIVITAMINS [Concomitant]
     Active Substance: VITAMINS
     Dosage: UNK
  15. BIOTIN [Concomitant]
     Active Substance: BIOTIN
     Indication: NAIL DISORDER
  16. HUMIRA [Suspect]
     Active Substance: ADALIMUMAB
     Indication: RHEUMATOID ARTHRITIS
     Dosage: UNK
     Route: 058
     Dates: end: 201401
  17. BIOTIN [Concomitant]
     Active Substance: BIOTIN
     Indication: ALOPECIA
  18. VICODIN [Concomitant]
     Active Substance: ACETAMINOPHEN\HYDROCODONE BITARTRATE
     Dosage: UNK (5/325 MG, HAS TAKEN 2)
     Dates: start: 201504
  19. GABAPENTIN. [Suspect]
     Active Substance: GABAPENTIN
     Indication: SPINAL COLUMN STENOSIS
     Dosage: 100 MG, 3X/DAY
     Dates: start: 201408
  20. GABAPENTIN. [Suspect]
     Active Substance: GABAPENTIN
     Indication: SCIATICA

REACTIONS (12)
  - Contusion [Unknown]
  - Rash papular [Unknown]
  - Pruritus [Unknown]
  - Skin atrophy [Unknown]
  - Pain of skin [Unknown]
  - Condition aggravated [Unknown]
  - Drug dose omission [Unknown]
  - Staphylococcal infection [Recovered/Resolved]
  - Body tinea [Recovered/Resolved]
  - Rash [Unknown]
  - Alopecia [Unknown]
  - Blood cholesterol increased [Unknown]

NARRATIVE: CASE EVENT DATE: 201407
